FAERS Safety Report 12283781 (Version 1)
Quarter: 2016Q2

REPORT INFORMATION
  Report Type: Spontaneous
  Country: US (occurrence: US)
  Receive Date: 20160419
  Receipt Date: 20160419
  Transmission Date: 20160815
  Serious: No
  Sender: FDA-Public Use
  Company Number: US-BANPHARM-20153912

PATIENT
  Age: 55 Year
  Sex: Female
  Weight: 61.24 kg

DRUGS (2)
  1. ALEVE [Suspect]
     Active Substance: NAPROXEN SODIUM
     Indication: ARTHRALGIA
     Dosage: 1 DF, PRN,
     Route: 048
     Dates: start: 2012, end: 2015
  2. ALEVE [Suspect]
     Active Substance: NAPROXEN SODIUM
     Dosage: 1 DF, PRN,
     Dates: start: 2012, end: 2015

REACTIONS (1)
  - Blood urine present [Recovered/Resolved]
